FAERS Safety Report 8264171-1 (Version None)
Quarter: 2012Q2

REPORT INFORMATION
  Report Type: 
  Country: None (occurrence: None)
  Receive Date: 20120403
  Receipt Date: 20120321
  Transmission Date: 20120825
  Serious: Yes (Other)
  Sender: FDA-Public Use
  Company Number: AUR-APL-2012-01598

PATIENT
  Age: 46 Year
  Sex: Female
  Weight: 113 kg

DRUGS (18)
  1. TAMIFLU [Concomitant]
  2. SINGULAIR [Concomitant]
  3. LISINOPRIL [Suspect]
     Indication: HYPERTENSION
     Dosage: (20 MG, 1 D), UNKNOWN
     Dates: start: 20050101
  4. EFFEXOR XR [Suspect]
     Indication: DEPRESSION
     Dosage: (150 MG, 1 D), UNKNOWN
     Dates: start: 20030101
  5. EFFEXOR XR [Suspect]
     Indication: AFFECTIVE DISORDER
     Dosage: (150 MG, 1 D), UNKNOWN
     Dates: start: 20030101
  6. EFFEXOR XR [Suspect]
     Indication: ANXIETY
     Dosage: (150 MG, 1 D), UNKNOWN
     Dates: start: 20030101
  7. PLAVIX [Concomitant]
  8. LIPITOR [Suspect]
     Indication: PRODUCT USED FOR UNKNOWN INDICATION
     Dosage: ORAL
     Route: 048
  9. PROGRAF [Concomitant]
  10. WELLBUTRIN [Concomitant]
  11. IMURAN [Concomitant]
  12. VALIUM [Concomitant]
  13. LYRICA [Suspect]
     Indication: PRODUCT USED FOR UNKNOWN INDICATION
     Dosage: UNKNOWN
  14. HUMULIN N (INSULIN INJECTION, ISOPHANE) [Concomitant]
  15. METOPROLOL TARTRATE [Suspect]
     Indication: HYPERTENSION
     Dosage: (150 MG), UNKNOWN
  16. ACIPHEX [Concomitant]
  17. NOVOLOG [Concomitant]
  18. HYOSCYAMINE (HYOSCYAMINE) [Concomitant]

REACTIONS (4)
  - RENAL TRANSPLANT [None]
  - LYMPHOCYTE COUNT DECREASED [None]
  - SUICIDAL IDEATION [None]
  - DEPRESSION [None]
